FAERS Safety Report 6030700-1 (Version None)
Quarter: 2009Q1

REPORT INFORMATION
  Report Type: 
  Country: None (occurrence: None)
  Receive Date: 20090107
  Receipt Date: 20081226
  Transmission Date: 20090719
  Serious: No
  Sender: FDA-Public Use
  Company Number: US-B.I. PHARMACEUTICALS,INC./RIDGEFIELD-2008-BP-19237BP

PATIENT
  Sex: Female

DRUGS (9)
  1. AGGRENOX [Suspect]
     Indication: CEREBROVASCULAR ACCIDENT PROPHYLAXIS
     Route: 048
     Dates: start: 20081219, end: 20081224
  2. ACCUPRIL [Concomitant]
     Dosage: 20MG
  3. ALDACTONE [Concomitant]
  4. CALCIUM [Concomitant]
  5. COREG [Concomitant]
     Indication: CARDIAC DISORDER
     Dosage: 50MG
  6. COUMADIN [Concomitant]
     Indication: ANTICOAGULANT THERAPY
  7. DEMADEX [Concomitant]
     Indication: DIURETIC THERAPY
  8. DRISDOL [Concomitant]
     Indication: VITAMIN D
     Dosage: 50ML
  9. FOLTX [Concomitant]
     Dosage: 2.5MG

REACTIONS (5)
  - ABDOMINAL PAIN UPPER [None]
  - DIARRHOEA [None]
  - DYSPNOEA [None]
  - HEADACHE [None]
  - MUSCLE SPASMS [None]
